FAERS Safety Report 15568955 (Version 2)
Quarter: 2019Q1

REPORT INFORMATION
  Report Type: Spontaneous
  Country: GB (occurrence: GB)
  Receive Date: 20181031
  Receipt Date: 20190213
  Transmission Date: 20190417
  Serious: Yes (Life-Threatening, Hospitalization, Other)
  Sender: FDA-Public Use
  Company Number: GB-DRREDDYS-USA/UKI/18/0105186

PATIENT
  Age: 14 Year
  Sex: Male

DRUGS (2)
  1. FLUOXETINE [Suspect]
     Active Substance: FLUOXETINE HYDROCHLORIDE
     Indication: DEPRESSION
     Dosage: APPROXIMATELY SIXTY 20 MG TABLETS (1.2 G TOTAL)
     Route: 048
  2. FLUOXETINE [Suspect]
     Active Substance: FLUOXETINE HYDROCHLORIDE
     Indication: SUICIDE ATTEMPT

REACTIONS (5)
  - Rhabdomyolysis [Recovering/Resolving]
  - Serotonin syndrome [Recovering/Resolving]
  - Intentional overdose [Recovering/Resolving]
  - Generalised tonic-clonic seizure [Recovering/Resolving]
  - Sinus tachycardia [Recovering/Resolving]
